FAERS Safety Report 25877498 (Version 1)
Quarter: 2025Q4

REPORT INFORMATION
  Report Type: Spontaneous
  Country: EU (occurrence: EU)
  Receive Date: 20251003
  Receipt Date: 20251003
  Transmission Date: 20260118
  Serious: Yes (Life-Threatening)
  Sender: PFIZER
  Company Number: None

PATIENT
  Age: 65 Year
  Sex: Male

DRUGS (4)
  1. OXALIPLATIN [Suspect]
     Active Substance: OXALIPLATIN
     Indication: Neoplasm malignant
     Dosage: 1 DF, CYCLIC, 20 MINUTES OF OXALIPLATIN ADMINISTERED OUT OF THE PLANNED 2 HOURS. C1
     Route: 042
     Dates: start: 20250820, end: 20250820
  2. OXALIPLATIN [Suspect]
     Active Substance: OXALIPLATIN
     Dosage: 1 DF, CYCLIC, 20 MINUTES OF OXALIPLATIN ADMINISTERED OUT OF THE PLANNED 2 HOURS. C2
     Route: 042
     Dates: start: 20250903, end: 20250903
  3. AMLODIPINE [Concomitant]
     Active Substance: AMLODIPINE BESYLATE
     Dosage: UNK
  4. ELIQUIS [Concomitant]
     Active Substance: APIXABAN
     Dosage: UNK

REACTIONS (1)
  - Type I hypersensitivity [Recovered/Resolved]

NARRATIVE: CASE EVENT DATE: 20250903
